FAERS Safety Report 6707525-4 (Version None)
Quarter: 2010Q2

REPORT INFORMATION
  Report Type: 
  Country: None (occurrence: None)
  Receive Date: 20100503
  Receipt Date: 20100421
  Transmission Date: 20101027
  Serious: Yes (Hospitalization, Other)
  Sender: FDA-Public Use
  Company Number: US-CELGENEUS-163-21880-10042081

PATIENT
  Sex: Male

DRUGS (3)
  1. REVLIMID [Suspect]
     Indication: AMYLOIDOSIS
     Dosage: 15MG QOD, 10MG QOD
     Route: 048
     Dates: start: 20100201
  2. REVLIMID [Suspect]
     Dosage: 10MG-15MG
     Route: 048
     Dates: start: 20090501
  3. REVLIMID [Suspect]
     Route: 048
     Dates: start: 20090201

REACTIONS (3)
  - DROP ATTACKS [None]
  - HERPES ZOSTER [None]
  - MYOCLONUS [None]
